FAERS Safety Report 22184678 (Version 2)
Quarter: 2023Q2

REPORT INFORMATION
  Report Type: Report from Study
  Country: US (occurrence: US)
  Receive Date: 20230407
  Receipt Date: 20230413
  Transmission Date: 20230722
  Serious: No
  Sender: FDA-Public Use
  Company Number: US-002147023-NVSC2023US079265

PATIENT
  Sex: Female
  Weight: 126.1 kg

DRUGS (4)
  1. ATENOLOL [Suspect]
     Active Substance: ATENOLOL
     Indication: Product used for unknown indication
     Dosage: UNK
     Route: 065
  2. ATORVASTATIN [Suspect]
     Active Substance: ATORVASTATIN
     Indication: Product used for unknown indication
     Dosage: 20 MG, AT BEDTIME
     Route: 048
  3. LOSARTAN [Suspect]
     Active Substance: LOSARTAN
     Indication: Product used for unknown indication
     Dosage: 25 MG, QD
     Route: 048
  4. SECUKINUMAB [Suspect]
     Active Substance: SECUKINUMAB
     Indication: Ankylosing spondylitis
     Dosage: 300 MG, QMO (2X150MG PENS)
     Route: 058

REACTIONS (10)
  - Musculoskeletal stiffness [Unknown]
  - Weight increased [Unknown]
  - Depression [Unknown]
  - Arthralgia [Unknown]
  - Bursitis [Unknown]
  - Exercise tolerance decreased [Unknown]
  - Tendonitis [Unknown]
  - Plantar fasciitis [Unknown]
  - Cartilage injury [Unknown]
  - Myofascial pain syndrome [Unknown]
